FAERS Safety Report 4477653-5 (Version None)
Quarter: 2004Q4

REPORT INFORMATION
  Report Type: 
  Country: None (occurrence: None)
  Receive Date: 20041014
  Receipt Date: 20041001
  Transmission Date: 20050328
  Serious: Yes (Death, Other)
  Sender: FDA-Public Use
  Company Number: 2004075213

PATIENT
  Age: 80 Year
  Sex: Female

DRUGS (2)
  1. LIPITOR [Suspect]
     Indication: ILL-DEFINED DISORDER
     Dosage: 80 MG
  2. COLCHICINE (COLCHICINE) [Concomitant]

REACTIONS (2)
  - DIALYSIS [None]
  - RHABDOMYOLYSIS [None]
